FAERS Safety Report 21987900 (Version 1)
Quarter: 2023Q1

REPORT INFORMATION
  Report Type: Report from Study
  Country: BE (occurrence: BE)
  Receive Date: 20230214
  Receipt Date: 20230214
  Transmission Date: 20230418
  Serious: Yes (Hospitalization)
  Sender: FDA-Public Use
  Company Number: BE-ABBVIE-4302754

PATIENT
  Sex: Male
  Weight: 65 kg

DRUGS (23)
  1. CARBIDOPA\LEVODOPA [Suspect]
     Active Substance: CARBIDOPA\LEVODOPA
     Indication: Parkinson^s disease
     Route: 050
     Dates: start: 20171106
  2. CARBIDOPA\LEVODOPA [Suspect]
     Active Substance: CARBIDOPA\LEVODOPA
     Dosage: MD 6.0 ML, CD 3.8 ML/H RUNNING AT 16H, ED 2.0ML
     Route: 050
     Dates: start: 20220921
  3. CARBIDOPA\LEVODOPA [Suspect]
     Active Substance: CARBIDOPA\LEVODOPA
     Dosage: MD 6.0 ML, CD 3.6 ML/H RUNNING AT 16H, ED 2.0
     Route: 050
     Dates: start: 20220512, end: 20220921
  4. BENSERAZIDE\LEVODOPA [Concomitant]
     Active Substance: BENSERAZIDE\LEVODOPA
     Indication: Product used for unknown indication
  5. Quetiapin 25 MG [Concomitant]
     Indication: Product used for unknown indication
     Dosage: FREQUENCY TEXT: AT 8
  6. STALEVO [Concomitant]
     Active Substance: CARBIDOPA\ENTACAPONE\LEVODOPA
     Indication: Product used for unknown indication
  7. REQUIP [Concomitant]
     Active Substance: ROPINIROLE HYDROCHLORIDE
     Indication: Product used for unknown indication
     Dosage: FREQUENCY TEXT: AT 8
  8. TRAZODONE [Concomitant]
     Active Substance: TRAZODONE HYDROCHLORIDE
     Indication: Product used for unknown indication
     Dosage: FREQUENCY TEXT: AT 16
  9. TRAZODONE [Concomitant]
     Active Substance: TRAZODONE HYDROCHLORIDE
     Indication: Product used for unknown indication
     Dosage: FREQUENCY TEXT: AT 22
  10. AMANTADINE [Concomitant]
     Active Substance: AMANTADINE
     Indication: Product used for unknown indication
  11. Amantadin 100 MG [Concomitant]
     Indication: Product used for unknown indication
     Dosage: FREQUENCY TEXT: AT 8, 20
  12. ARTANE [Concomitant]
     Active Substance: TRIHEXYPHENIDYL HYDROCHLORIDE
     Indication: Product used for unknown indication
     Dosage: FREQUENCY TEXT: AT 8 AND 17
  13. BENSERAZIDE\LEVODOPA [Concomitant]
     Active Substance: BENSERAZIDE\LEVODOPA
     Indication: Product used for unknown indication
  14. Prolopa HBS 125 MG [Concomitant]
     Indication: Product used for unknown indication
     Dosage: FREQUENCY TEXT: AT 22
  15. QUETIAPINE [Concomitant]
     Active Substance: QUETIAPINE
     Indication: Product used for unknown indication
  16. Stalevo 150 MG [Concomitant]
     Indication: Product used for unknown indication
     Dosage: FREQUENCY TEXT: AT 12, 16, 20
  17. ALPRAZOLAM [Concomitant]
     Active Substance: ALPRAZOLAM
     Indication: Product used for unknown indication
     Dosage: FREQUENCY TEXT: AT 8, 12, 18
  18. SERTRALINE [Concomitant]
     Active Substance: SERTRALINE HYDROCHLORIDE
     Indication: Product used for unknown indication
     Dosage: FREQUENCY TEXT: AT 12
  19. ZOLPIDEM [Concomitant]
     Active Substance: ZOLPIDEM TARTRATE
     Indication: Product used for unknown indication
     Dosage: FREQUENCY TEXT: AT 22
  20. REQUIP [Concomitant]
     Active Substance: ROPINIROLE HYDROCHLORIDE
     Indication: Product used for unknown indication
  21. Prolopa 250 MG [Concomitant]
     Indication: Product used for unknown indication
     Dosage: FREQUENCY TEXT: AT 8, 10, 18
  22. AZILECT [Concomitant]
     Active Substance: RASAGILINE MESYLATE
     Indication: Product used for unknown indication
  23. AZILECT [Concomitant]
     Active Substance: RASAGILINE MESYLATE
     Indication: Product used for unknown indication
     Dosage: FREQUENCY TEXT: AT 8

REACTIONS (4)
  - Hospitalisation [Unknown]
  - Fall [Unknown]
  - Device breakage [Unknown]
  - Device dislocation [Not Recovered/Not Resolved]
